FAERS Safety Report 22398657 (Version 1)
Quarter: 2023Q2

REPORT INFORMATION
  Report Type: Spontaneous
  Country: US (occurrence: US)
  Receive Date: 20230602
  Receipt Date: 20230602
  Transmission Date: 20230721
  Serious: No
  Sender: FDA-Public Use
  Company Number: US-AMGEN-USASP2023092102

PATIENT
  Sex: Female

DRUGS (16)
  1. ENBREL [Suspect]
     Active Substance: ETANERCEPT
     Indication: Product used for unknown indication
     Dosage: UNK
     Route: 065
  2. LYRICA [Concomitant]
     Active Substance: PREGABALIN
     Dosage: UNK
  3. ESCITALOPRAM [Concomitant]
     Active Substance: ESCITALOPRAM OXALATE
     Dosage: UNK
  4. ROSUVASTATIN [Concomitant]
     Active Substance: ROSUVASTATIN
     Dosage: UNK
  5. EZETIMIBE [Concomitant]
     Active Substance: EZETIMIBE
     Dosage: UNK
  6. BRILINTA [Concomitant]
     Active Substance: TICAGRELOR
     Dosage: UNK
  7. ISOSORBIDE MONONITRATE [Concomitant]
     Active Substance: ISOSORBIDE MONONITRATE
  8. PANTOPRAZOLE SODIUM [Concomitant]
     Active Substance: PANTOPRAZOLE SODIUM
  9. ELIQUIS [Concomitant]
     Active Substance: APIXABAN
  10. OXYCODONE AND ACETAMINOPHEN [Concomitant]
     Active Substance: ACETAMINOPHEN\OXYCODONE HYDROCHLORIDE
  11. LINZESS [Concomitant]
     Active Substance: LINACLOTIDE
  12. PREDNISONE [Concomitant]
     Active Substance: PREDNISONE
  13. HYDROCHLOROTHIAZIDE [Concomitant]
     Active Substance: HYDROCHLOROTHIAZIDE
  14. BUSPIRONE HCL [Concomitant]
     Active Substance: BUSPIRONE HYDROCHLORIDE
  15. TOPIRAMATE [Concomitant]
     Active Substance: TOPIRAMATE
  16. VALSARTAN [Concomitant]
     Active Substance: VALSARTAN

REACTIONS (1)
  - Drug ineffective [Unknown]
